FAERS Safety Report 6000797-3 (Version None)
Quarter: 2008Q4

REPORT INFORMATION
  Report Type: 
  Country: None (occurrence: None)
  Receive Date: 20081211
  Receipt Date: 20081126
  Transmission Date: 20090506
  Serious: Yes (Other)
  Sender: FDA-Public Use
  Company Number: 2008S1000541

PATIENT
  Age: 43 Year
  Sex: Male

DRUGS (2)
  1. ACITRETIN [Suspect]
     Indication: PROPHYLAXIS
     Dosage: ; QD; PO
     Route: 048
     Dates: start: 19880101
  2. EMOLLIENTS AND PROTECTIVES [Concomitant]

REACTIONS (6)
  - BASAL CELL CARCINOMA [None]
  - FINGER AMPUTATION [None]
  - KERATOACANTHOMA [None]
  - NEOPLASM [None]
  - OFF LABEL USE [None]
  - SQUAMOUS CELL CARCINOMA [None]
